FAERS Safety Report 9778790 (Version 1)
Quarter: 2013Q4

REPORT INFORMATION
  Report Type: Spontaneous
  Country: NL (occurrence: NL)
  Receive Date: 20131223
  Receipt Date: 20131223
  Transmission Date: 20140711
  Serious: Yes (Hospitalization)
  Sender: FDA-Public Use
  Company Number: NL-B.I. PHARMACEUTICALS,INC./RIDGEFIELD-2013-BI-42433NL

PATIENT
  Sex: Male

DRUGS (1)
  1. APTIVUS [Suspect]

REACTIONS (1)
  - Surgery [Unknown]
